FAERS Safety Report 6856802-5 (Version None)
Quarter: 2010Q3

REPORT INFORMATION
  Report Type: 
  Country: None (occurrence: None)
  Receive Date: 20100719
  Receipt Date: 20100713
  Transmission Date: 20110219
  Serious: Yes (Hospitalization, Other)
  Sender: FDA-Public Use
  Company Number: FR-BRISTOL-MYERS SQUIBB COMPANY-15109374

PATIENT
  Age: 80 Year
  Sex: Female

DRUGS (5)
  1. SPRYCEL [Suspect]
     Indication: CHRONIC MYELOID LEUKAEMIA
     Dosage: CAPSULES
     Route: 048
     Dates: start: 20080129, end: 20100318
  2. COAPROVEL [Concomitant]
     Dates: start: 20100107
  3. CHONDROSULF [Concomitant]
  4. TANAKAN [Concomitant]
  5. OROCAL [Concomitant]

REACTIONS (7)
  - ATRIAL FIBRILLATION [None]
  - HYPERTENSION [None]
  - INFECTION [None]
  - OEDEMA [None]
  - PALPITATIONS [None]
  - PERICARDITIS [None]
  - PLEURISY [None]
